FAERS Safety Report 14331378 (Version 1)
Quarter: 2017Q4

REPORT INFORMATION
  Report Type: Report from Study
  Country: US (occurrence: US)
  Receive Date: 20171228
  Receipt Date: 20171228
  Transmission Date: 20180321
  Serious: Yes (Hospitalization)
  Sender: FDA-Public Use
  Company Number: US-ROCHE-2044611

PATIENT
  Age: 56 Year
  Sex: Female
  Weight: 74.91 kg

DRUGS (1)
  1. OCREVUS [Suspect]
     Active Substance: OCRELIZUMAB
     Indication: MULTIPLE SCLEROSIS
     Dosage: ON 28/APR/2017, PATIENT WAS PRESCRIBED WITH IV OCRELIZUMAB 300 MG TO BE ADMINISTERED ON DAY 1 AND DA
     Route: 042
     Dates: start: 20171127

REACTIONS (2)
  - Urinary tract infection [Recovering/Resolving]
  - Pneumonia [Recovering/Resolving]

NARRATIVE: CASE EVENT DATE: 20171127
